FAERS Safety Report 7830809-3 (Version None)
Quarter: 2011Q4

REPORT INFORMATION
  Report Type: 
  Country: None (occurrence: None)
  Receive Date: 20111021
  Receipt Date: 20111014
  Transmission Date: 20120403
  Serious: Yes (Other)
  Sender: FDA-Public Use
  Company Number: GB-GLAXOSMITHKLINE-B0735313A

PATIENT
  Age: 41 Year
  Sex: Female
  Weight: 92 kg

DRUGS (2)
  1. DIAZEPAM [Concomitant]
     Indication: ANXIETY
     Route: 048
     Dates: start: 20110101
  2. PAROXETINE HCL [Suspect]
     Indication: ANXIETY
     Route: 048
     Dates: start: 20110518, end: 20110601

REACTIONS (3)
  - DYSPNOEA [None]
  - ANXIETY [None]
  - SLEEP DISORDER [None]
